FAERS Safety Report 4702971-2 (Version None)
Quarter: 2005Q2

REPORT INFORMATION
  Report Type: 
  Country: None (occurrence: None)
  Receive Date: 20050629
  Receipt Date: 20050412
  Transmission Date: 20051028
  Serious: Yes (Hospitalization, Other)
  Sender: FDA-Public Use
  Company Number: 200513063US

PATIENT
  Age: 80 Year
  Sex: Female
  Weight: 74 kg

DRUGS (10)
  1. LOVENOX [Suspect]
     Indication: ACUTE MYOCARDIAL INFARCTION
     Route: 058
     Dates: start: 20031209, end: 20031213
  2. LOVENOX [Suspect]
     Indication: THROMBOSIS PROPHYLAXIS
     Route: 058
     Dates: start: 20031209, end: 20031213
  3. ROCEPHIN [Concomitant]
     Dosage: DOSE: UNKNOWN
  4. ZOSYN [Concomitant]
     Dosage: DOSE: UNKNOWN
  5. PLAVIX [Concomitant]
     Dosage: DOSE: UNKNOWN
  6. PREVACID [Concomitant]
     Dosage: DOSE: UNKNOWN
  7. NITROPASTE [Concomitant]
     Dosage: DOSE: UNKNOWN
  8. AMIODARONE HCL [Concomitant]
     Dosage: DOSE: UNKNOWN
  9. SOLU-MEDROL [Concomitant]
     Dosage: DOSE: UNKNOWN
  10. COLACE [Concomitant]
     Dosage: DOSE: UNKNOWN

REACTIONS (5)
  - ANKLE FRACTURE [None]
  - EXTRAVASATION [None]
  - HAEMOGLOBIN DECREASED [None]
  - RETROPERITONEAL HAEMORRHAGE [None]
  - SYNCOPE [None]
